FAERS Safety Report 5967055-4 (Version None)
Quarter: 2008Q4

REPORT INFORMATION
  Report Type: 
  Country: None (occurrence: None)
  Receive Date: 20081125
  Receipt Date: 20080923
  Transmission Date: 20090506
  Serious: No
  Sender: FDA-Public Use
  Company Number: US-AMGEN-KDL309427

PATIENT
  Sex: Female

DRUGS (1)
  1. ENBREL [Suspect]
     Indication: RHEUMATOID ARTHRITIS
     Route: 058
     Dates: start: 20080226

REACTIONS (5)
  - BLOOD URINE PRESENT [None]
  - CONTUSION [None]
  - HAEMATOCHEZIA [None]
  - RENAL CYST [None]
  - WHITE BLOOD CELL COUNT ABNORMAL [None]
